FAERS Safety Report 23181132 (Version 2)
Quarter: 2024Q1

REPORT INFORMATION
  Report Type: Spontaneous
  Country: CO (occurrence: CO)
  Receive Date: 20231114
  Receipt Date: 20240103
  Transmission Date: 20240409
  Serious: No
  Sender: FDA-Public Use
  Company Number: CO-PFIZER INC-PV202300177048

PATIENT
  Sex: Male

DRUGS (1)
  1. GENOTROPIN [Suspect]
     Active Substance: SOMATROPIN
     Dosage: UNK
     Route: 058

REACTIONS (3)
  - Device use issue [Unknown]
  - Device difficult to use [Unknown]
  - Device leakage [Unknown]
